FAERS Safety Report 9279222 (Version 1)
Quarter: 2013Q2

REPORT INFORMATION
  Report Type: Spontaneous
  Country: SE (occurrence: SE)
  Receive Date: 20130508
  Receipt Date: 20130508
  Transmission Date: 20140414
  Serious: Yes (Other)
  Sender: FDA-Public Use
  Company Number: CHPA2013SE007902

PATIENT
  Sex: Male

DRUGS (1)
  1. TAVEGYL [Suspect]
     Indication: SEDATION
     Dosage: UNK, UNK
     Route: 065

REACTIONS (2)
  - Drug dependence [Unknown]
  - Off label use [Unknown]
